FAERS Safety Report 9719256 (Version 2)
Quarter: 2014Q2

REPORT INFORMATION
  Report Type: Spontaneous
  Country: JP (occurrence: JP)
  Receive Date: 20131127
  Receipt Date: 20140422
  Transmission Date: 20141212
  Serious: Yes (Other)
  Sender: FDA-Public Use
  Company Number: PHHY2013JP137048

PATIENT
  Sex: 0

DRUGS (3)
  1. NEORAL [Suspect]
     Indication: APLASTIC ANAEMIA
     Dosage: UNK UKN, UNK
     Route: 048
  2. EPADEL [Concomitant]
     Dosage: UNK UKN, UNK
     Route: 048
  3. BLOPRESS [Concomitant]
     Dosage: UNK UKN, UNK
     Route: 048

REACTIONS (1)
  - Macular oedema [Unknown]
